FAERS Safety Report 23993855 (Version 1)
Quarter: 2024Q2

REPORT INFORMATION
  Report Type: Spontaneous
  Country: US (occurrence: None)
  Receive Date: 20240618
  Receipt Date: 20240618
  Transmission Date: 20240715
  Serious: Yes (Disabling)
  Sender: FDA-Public Use
  Company Number: None

PATIENT
  Age: 62 Year
  Sex: Female
  Weight: 65.25 kg

DRUGS (10)
  1. ESCITALOPRAM OXALATE [Suspect]
     Active Substance: ESCITALOPRAM OXALATE
     Indication: Anxiety
     Dates: start: 20230720, end: 20240520
  2. QELBREE [Concomitant]
     Active Substance: VILOXAZINE HYDROCHLORIDE
  3. BUPROPION [Concomitant]
  4. OMEPRAZOLE [Concomitant]
     Active Substance: DONEPEZIL HYDROCHLORIDE\OMEPRAZOLE\OMEPRAZOLE MAGNESIUM
  5. MegaFood Women^s 55+ [Concomitant]
  6. Multivitamin [Concomitant]
  7. COENZYME Q10 [Concomitant]
     Active Substance: DIETARY SUPPLEMENT\UBIDECARENONE
  8. Ceylon Cinnamon [Concomitant]
  9. Vital Proteins [Concomitant]
  10. Peptides [Concomitant]

REACTIONS (2)
  - Tremor [None]
  - Eating disorder [None]

NARRATIVE: CASE EVENT DATE: 20240618
